FAERS Safety Report 12410692 (Version 1)
Quarter: 2016Q2

REPORT INFORMATION
  Report Type: Spontaneous
  Country: US (occurrence: US)
  Receive Date: 20160527
  Receipt Date: 20160527
  Transmission Date: 20160815
  Serious: Yes (Other)
  Sender: FDA-Public Use
  Company Number: US-ELI_LILLY_AND_COMPANY-US201605008383

PATIENT
  Sex: Female
  Weight: 83.9 kg

DRUGS (18)
  1. CARVEDILOL. [Concomitant]
     Active Substance: CARVEDILOL
     Dosage: 6.25 MG, BID
     Route: 048
     Dates: start: 20160506
  2. KLOR-CON [Concomitant]
     Active Substance: POTASSIUM CHLORIDE
     Dosage: 20 UG, QD
     Route: 048
     Dates: start: 20160506, end: 20160506
  3. KLOR-CON [Concomitant]
     Active Substance: POTASSIUM CHLORIDE
     Dosage: UNK UNK, OTHER (30-50MEQ PRN)
     Route: 048
     Dates: start: 20160506
  4. COUMADIN [Concomitant]
     Active Substance: WARFARIN SODIUM
     Indication: ATRIAL FIBRILLATION
     Dosage: UNK, UNKNOWN
     Route: 065
  5. TYVASO [Suspect]
     Active Substance: TREPROSTINIL
     Indication: PULMONARY ARTERIAL HYPERTENSION
     Dosage: 9 DF, QID
     Route: 055
     Dates: start: 20150511
  6. DILTIAZEM HCL [Concomitant]
     Active Substance: DILTIAZEM HYDROCHLORIDE
     Dosage: 30 MG, UNKNOWN
     Route: 048
     Dates: start: 20160506
  7. CLARITIN [Concomitant]
     Active Substance: LORATADINE
     Dosage: 10 MG, UNKNOWN
     Route: 048
     Dates: start: 20160506
  8. CALCIUM CARBONATE. [Concomitant]
     Active Substance: CALCIUM CARBONATE
     Dosage: 1 DF, QD
     Route: 048
     Dates: start: 20160506
  9. FERROUS SULFATE. [Concomitant]
     Active Substance: FERROUS SULFATE
     Dosage: 325 MG, BID
     Route: 048
     Dates: start: 20160506
  10. ZAROXOLYN [Concomitant]
     Active Substance: METOLAZONE
     Dosage: 2.5 MG, UNKNOWN
     Route: 048
     Dates: start: 20160513
  11. CRESTOR [Concomitant]
     Active Substance: ROSUVASTATIN CALCIUM
     Dosage: 5 MG, UNKNOWN
     Route: 048
     Dates: start: 20160506
  12. ASPIRIN                            /00002701/ [Concomitant]
     Active Substance: ASPIRIN
     Indication: PRODUCT USED FOR UNKNOWN INDICATION
     Dosage: 61 MG, UNKNOWN
     Route: 048
  13. XARELTO [Concomitant]
     Active Substance: RIVAROXABAN
     Dosage: 5 MG, UNKNOWN
     Route: 048
     Dates: start: 20160506
  14. METOLAZONE. [Concomitant]
     Active Substance: METOLAZONE
     Indication: DIURETIC THERAPY
     Dosage: UNK, UNKNOWN
     Route: 065
  15. ADCIRCA [Suspect]
     Active Substance: TADALAFIL
     Indication: PULMONARY HYPERTENSION
     Dosage: 20 MG, QD
     Route: 048
     Dates: start: 20160512
  16. DRISDOL [Concomitant]
     Active Substance: ERGOCALCIFEROL
     Dosage: UNK
     Route: 048
     Dates: start: 20160506
  17. LASIX [Concomitant]
     Active Substance: FUROSEMIDE
     Indication: DIURETIC THERAPY
     Dosage: 80 MG, BID
     Route: 048
     Dates: start: 20160513
  18. ZOFRAN [Concomitant]
     Active Substance: ONDANSETRON HYDROCHLORIDE
     Dosage: 4 MG, PRN
     Route: 065
     Dates: start: 20160505

REACTIONS (1)
  - Acute kidney injury [Unknown]
